FAERS Safety Report 8902612 (Version 4)
Quarter: 2012Q4

REPORT INFORMATION
  Report Type: 
  Country: DE (occurrence: DE)
  Receive Date: 20121112
  Receipt Date: 20121218
  Transmission Date: 20130627
  Serious: Yes (Hospitalization)
  Sender: FDA-Public Use
  Company Number: DE-AMGEN-DEUCT2012069257

PATIENT
  Age: 72 Year
  Sex: Female

DRUGS (4)
  1. PANITUMUMAB [Suspect]
     Indication: GASTRIC CANCER
     Dosage: 9 mg/kg, UNK
     Dates: start: 20120928
  2. EPIRUBICIN [Concomitant]
     Dosage: 50 mg/m2, UNK
     Dates: start: 20120928
  3. CISPLATIN [Concomitant]
     Dosage: 60 mg/m2, UNK
     Dates: start: 20120928
  4. CAPECITABINE [Concomitant]
     Dosage: 625 mg/m2, UNK
     Dates: start: 20120928

REACTIONS (5)
  - Vertigo [Recovered/Resolved]
  - Hyperventilation [Recovered/Resolved]
  - Syncope [Recovered/Resolved]
  - Nausea [Recovered/Resolved]
  - Pupils unequal [Not Recovered/Not Resolved]
